FAERS Safety Report 5156896-1 (Version None)
Quarter: 2006Q3

REPORT INFORMATION
  Report Type: 
  Country: None (occurrence: None)
  Receive Date: 20060918
  Receipt Date: 20060621
  Transmission Date: 20061208
  Serious: Yes (Other)
  Sender: FDA-Public Use
  Company Number: US-JNJFOC-20060604830

PATIENT
  Age: 31 Year
  Sex: Female
  Weight: 77.1115 kg

DRUGS (4)
  1. TOPAMAX [Suspect]
     Indication: MIGRAINE
     Dosage: 50 MG, 2 IN 1 DAY , ORAL
     Route: 048
     Dates: start: 20010101, end: 20051101
  2. MIDRIN (MIDRID) [Concomitant]
  3. ZYRTEC [Concomitant]
  4. ESTROSTEP (ANOVLAR) [Concomitant]

REACTIONS (4)
  - ANXIETY [None]
  - CONVULSION [None]
  - DEJA VU [None]
  - NAUSEA [None]
